FAERS Safety Report 17426411 (Version 1)
Quarter: 2020Q1

REPORT INFORMATION
  Report Type: Spontaneous
  Country: BE (occurrence: BE)
  Receive Date: 20200217
  Receipt Date: 20200217
  Transmission Date: 20200409
  Serious: Yes (Hospitalization)
  Sender: FDA-Public Use
  Company Number: BE-PFIZER INC-2020063973

PATIENT
  Age: 82 Year
  Sex: Male
  Weight: 72 kg

DRUGS (8)
  1. ALDACTONE [Concomitant]
     Active Substance: SPIRONOLACTONE
     Dosage: 25 MG, 1X/DAY
     Route: 048
  2. MEDROL [Suspect]
     Active Substance: METHYLPREDNISOLONE
     Dosage: 4 MG, ONCE DAILY
     Route: 048
  3. DICLOFENAC SODIUM. [Interacting]
     Active Substance: DICLOFENAC SODIUM
     Indication: RHEUMATIC DISORDER
     Dosage: UNK (NOT CLEAR - MIGHT BE HIGH DOSE, RECENTLY ADMINISTERED)
     Route: 030
  4. BISOPROLOL [Concomitant]
     Active Substance: BISOPROLOL
     Dosage: 2.5 MG, 1X/DAY
     Route: 048
  5. LIPITOR [Concomitant]
     Active Substance: ATORVASTATIN CALCIUM
     Dosage: 20 MG, 1X/DAY
  6. MAREVAN [Interacting]
     Active Substance: WARFARIN SODIUM
     Dosage: 0.25 DF, DAILY
     Route: 048
  7. METFORMAX [Concomitant]
     Active Substance: METFORMIN HYDROCHLORIDE
     Dosage: 1700 MG, 1X/DAY
     Route: 048
  8. MAREVAN [Interacting]
     Active Substance: WARFARIN SODIUM
     Dosage: 0.5 DF, DAILY
     Route: 048

REACTIONS (5)
  - Melaena [Recovering/Resolving]
  - Gastrooesophageal reflux disease [Recovering/Resolving]
  - Gastrointestinal ulcer [Recovering/Resolving]
  - Gastrointestinal haemorrhage [Recovering/Resolving]
  - Drug interaction [Recovering/Resolving]

NARRATIVE: CASE EVENT DATE: 20191109
